FAERS Safety Report 6530434-0 (Version None)
Quarter: 2010Q1

REPORT INFORMATION
  Report Type: 
  Country: None (occurrence: None)
  Receive Date: 20100107
  Receipt Date: 20100104
  Transmission Date: 20100710
  Serious: Yes (Other)
  Sender: FDA-Public Use
  Company Number: DE-MERCK-1001DEU00004

PATIENT
  Age: 45 Year
  Sex: Female

DRUGS (1)
  1. MAXALT [Suspect]
     Indication: MIGRAINE
     Route: 048
     Dates: end: 20091201

REACTIONS (6)
  - ABNORMAL BEHAVIOUR [None]
  - DISORIENTATION [None]
  - HYPOAESTHESIA [None]
  - PARAESTHESIA [None]
  - POISONING [None]
  - SCREAMING [None]
